FAERS Safety Report 6313939-7 (Version None)
Quarter: 2009Q3

REPORT INFORMATION
  Report Type: 
  Country: None (occurrence: None)
  Receive Date: 20090818
  Receipt Date: 20090809
  Transmission Date: 20100115
  Serious: Yes (Other)
  Sender: FDA-Public Use
  Company Number: DE-TEVA-205909ISR

PATIENT
  Sex: Female

DRUGS (3)
  1. DOXORUBICIN HCL [Suspect]
     Indication: B-CELL LYMPHOMA
     Dates: start: 20070101, end: 20071001
  2. VINCRISTINE [Suspect]
     Indication: B-CELL LYMPHOMA
     Dates: end: 20071001
  3. CYCLOPHOSPHAMIDE [Concomitant]
     Dates: start: 20070101, end: 20071001

REACTIONS (4)
  - DIZZINESS [None]
  - GAIT DISTURBANCE [None]
  - PALMAR-PLANTAR ERYTHRODYSAESTHESIA SYNDROME [None]
  - PARAESTHESIA [None]
